FAERS Safety Report 10527493 (Version 1)
Quarter: 2014Q4

REPORT INFORMATION
  Report Type: Spontaneous
  Country: US (occurrence: None)
  Receive Date: 20141016
  Receipt Date: 20141016
  Transmission Date: 20150528
  Serious: Yes (Life-Threatening, Hospitalization, Disabling, Other)
  Sender: FDA-Public Use
  Company Number: None

PATIENT
  Age: 33 Year
  Sex: Female

DRUGS (1)
  1. ACETAZOLAMIDE ER [Suspect]
     Active Substance: ACETAZOLAMIDE
     Indication: BENIGN INTRACRANIAL HYPERTENSION
     Dosage: 1 CAPSULE TWICE DAILY TWICE DAILY TAKEN BY MOUTH
     Route: 048
     Dates: start: 20130717, end: 20131211

REACTIONS (23)
  - Abdominal pain [None]
  - Decreased appetite [None]
  - Product quality issue [None]
  - Abnormal faeces [None]
  - Vomiting [None]
  - Dehydration [None]
  - Sleep disorder [None]
  - Myalgia [None]
  - Weight decreased [None]
  - Nausea [None]
  - Product packaging quantity issue [None]
  - Retching [None]
  - Metabolic acidosis [None]
  - Arthralgia [None]
  - Product odour abnormal [None]
  - Product packaging issue [None]
  - Diarrhoea [None]
  - Electrocardiogram abnormal [None]
  - Parosmia [None]
  - Cholelithiasis [None]
  - Delirium [None]
  - Chest discomfort [None]
  - Product substitution issue [None]
